FAERS Safety Report 7095629-9 (Version None)
Quarter: 2010Q4

REPORT INFORMATION
  Report Type: 
  Country: None (occurrence: None)
  Receive Date: 20101111
  Receipt Date: 20101108
  Transmission Date: 20110411
  Serious: Yes (Life-Threatening)
  Sender: FDA-Public Use
  Company Number: PHHY2010BB75375

PATIENT
  Sex: Male

DRUGS (2)
  1. EXJADE [Suspect]
     Indication: MYELOFIBROSIS
     Dosage: 750 MG/DAY
     Route: 048
  2. EXJADE [Suspect]
     Dosage: UNK
     Route: 048

REACTIONS (1)
  - PANCYTOPENIA [None]
